FAERS Safety Report 5479097-6 (Version None)
Quarter: 2007Q4

REPORT INFORMATION
  Report Type: 
  Country: None (occurrence: None)
  Receive Date: 20071006
  Receipt Date: 20070927
  Transmission Date: 20080405
  Serious: Yes (Other)
  Sender: FDA-Public Use
  Company Number: US-PFIZER INC-2007081396

PATIENT
  Sex: Female
  Weight: 90.909 kg

DRUGS (10)
  1. LIPITOR [Suspect]
     Indication: BLOOD CHOLESTEROL INCREASED
  2. TRICOR [Interacting]
     Indication: BLOOD TRIGLYCERIDES INCREASED
  3. EFFEXOR [Concomitant]
  4. LEVOTHYROXINE SODIUM [Concomitant]
  5. TESTOSTERONE [Concomitant]
  6. PROGESTERONE [Concomitant]
  7. VITAMIN B [Concomitant]
  8. CIPROFLOXACIN [Concomitant]
  9. HOMEOPATHIC PREPARATION [Concomitant]
  10. HERBAL PREPARATION [Concomitant]

REACTIONS (3)
  - BLOOD CHOLESTEROL INCREASED [None]
  - BLOOD TRIGLYCERIDES INCREASED [None]
  - DRUG INTERACTION [None]
